FAERS Safety Report 6862466-7 (Version None)
Quarter: 2010Q3

REPORT INFORMATION
  Report Type: 
  Country: None (occurrence: None)
  Receive Date: 20100716
  Receipt Date: 20100630
  Transmission Date: 20110219
  Serious: Yes (Hospitalization)
  Sender: FDA-Public Use
  Company Number: CV20100312

PATIENT
  Age: 46 Year
  Sex: Female

DRUGS (8)
  1. PROPOFOL [Suspect]
     Indication: INDUCTION OF ANAESTHESIA
     Dosage: INTRAVENOUS (NOT OTHERWISE SPECIFIED)
     Route: 042
     Dates: start: 20100520, end: 20100520
  2. ATRACURIUM [Concomitant]
  3. SUFENTA PRESERVATIVE FREE [Concomitant]
  4. NORMACOL (BACTRIM) [Concomitant]
  5. DROPERIDOL [Concomitant]
  6. AUGMENTIN '125' [Concomitant]
  7. SEVOFLURANE [Concomitant]
  8. KALINOX (ENTONOX) [Concomitant]

REACTIONS (6)
  - HAEMATURIA [None]
  - HAEMOLYSIS [None]
  - LYMPHOPENIA [None]
  - OLIGURIA [None]
  - POST PROCEDURAL COMPLICATION [None]
  - RENAL FAILURE ACUTE [None]
